FAERS Safety Report 5590074-7 (Version None)
Quarter: 2007Q4

REPORT INFORMATION
  Report Type: 
  Country: None (occurrence: None)
  Receive Date: 20071217
  Receipt Date: 20070831
  Transmission Date: 20080405
  Serious: No
  Sender: FDA-Public Use
  Company Number: BDI-010142

PATIENT
  Age: 40 Year
  Sex: Male
  Weight: 44 kg

DRUGS (2)
  1. MULTIHANCE [Suspect]
     Indication: NUCLEAR MAGNETIC RESONANCE IMAGING
     Dosage: 10 ML ONCE IV
     Route: 042
     Dates: start: 20070830, end: 20070830
  2. MULTIHANCE [Suspect]
     Indication: VENTRICULAR TACHYCARDIA
     Dosage: 10 ML ONCE IV
     Route: 042
     Dates: start: 20070830, end: 20070830

REACTIONS (4)
  - DIPLOPIA [None]
  - EYELID OEDEMA [None]
  - NAUSEA [None]
  - VOMITING [None]
